FAERS Safety Report 10073488 (Version 2)
Quarter: 2014Q2

REPORT INFORMATION
  Report Type: Spontaneous
  Country: DE (occurrence: DE)
  Receive Date: 20140411
  Receipt Date: 20140411
  Transmission Date: 20141212
  Serious: Yes (Other)
  Sender: FDA-Public Use
  Company Number: DE-UCBSA-110471

PATIENT
  Sex: Male

DRUGS (4)
  1. NEUPRO [Suspect]
     Indication: RESTLESS LEGS SYNDROME
     Route: 062
     Dates: start: 20130116, end: 20130125
  2. TILIDINE [Concomitant]
  3. DOXEPINE [Concomitant]
  4. SIFROL [Concomitant]

REACTIONS (1)
  - Dermatitis allergic [Recovering/Resolving]
